FAERS Safety Report 16961179 (Version 1)
Quarter: 2019Q4

REPORT INFORMATION
  Report Type: Other
  Country: NL (occurrence: NL)
  Receive Date: 20191025
  Receipt Date: 20191025
  Transmission Date: 20200122
  Serious: Yes (Other)
  Sender: FDA-Public Use
  Company Number: NL-APOTEX-2019AP023881

PATIENT
  Age: 51 Year
  Sex: Female
  Weight: 70 kg

DRUGS (1)
  1. TAMOXIFEN [Suspect]
     Active Substance: TAMOXIFEN
     Indication: BREAST CANCER
     Dosage: 10 MG, QD
     Route: 065
     Dates: start: 20190707

REACTIONS (7)
  - Musculoskeletal stiffness [Recovering/Resolving]
  - Hot flush [Recovering/Resolving]
  - Blister [Recovering/Resolving]
  - Neuropathy peripheral [Unknown]
  - Oedema [Recovering/Resolving]
  - Arthralgia [Recovering/Resolving]
  - Pain [Unknown]
